FAERS Safety Report 16393566 (Version 1)
Quarter: 2019Q2

REPORT INFORMATION
  Report Type: Spontaneous
  Country: US (occurrence: US)
  Receive Date: 20190605
  Receipt Date: 20190605
  Transmission Date: 20190711
  Serious: Yes (Other)
  Sender: FDA-Public Use
  Company Number: US-SUNOVION-2019SUN002316

PATIENT
  Age: 75 Year
  Sex: Female

DRUGS (1)
  1. LATUDA [Suspect]
     Active Substance: LURASIDONE HYDROCHLORIDE
     Dosage: 10 MG, QD (20MG HALF A TABLET A DAY)
     Route: 048

REACTIONS (3)
  - Wrong technique in product usage process [Unknown]
  - Femur fracture [Unknown]
  - Off label use [Unknown]
